FAERS Safety Report 4921356-7 (Version None)
Quarter: 2006Q1

REPORT INFORMATION
  Report Type: 
  Country: None (occurrence: None)
  Receive Date: 20060222
  Receipt Date: 20060222
  Transmission Date: 20060701
  Serious: Yes (Life-Threatening, Hospitalization)
  Sender: FDA-Public Use
  Company Number: None

PATIENT
  Age: 66 Year
  Sex: Male
  Weight: 80 kg

DRUGS (4)
  1. CETUXIMAB [Suspect]
     Indication: COLON CANCER
     Dosage: 5MG TEST, 760MG IV
     Route: 042
     Dates: start: 20050902
  2. CETUXIMAB [Suspect]
     Indication: COLON CANCER
     Dosage: 5MG TEST, 760MG IV
     Route: 042
     Dates: start: 20050912
  3. VASOTEC RPD [Concomitant]
  4. COUMADIN [Concomitant]

REACTIONS (12)
  - ANAPHYLACTIC REACTION [None]
  - ANGIONEUROTIC OEDEMA [None]
  - BLOOD PRESSURE DECREASED [None]
  - CHEST DISCOMFORT [None]
  - DIZZINESS [None]
  - DYSPNOEA [None]
  - ERYTHEMA [None]
  - INFUSION RELATED REACTION [None]
  - OXYGEN SATURATION DECREASED [None]
  - PRURITUS [None]
  - SKIN DISCOLOURATION [None]
  - WHEEZING [None]
